FAERS Safety Report 5665000-2 (Version None)
Quarter: 2008Q1

REPORT INFORMATION
  Report Type: 
  Country: None (occurrence: None)
  Receive Date: 20080314
  Receipt Date: 20080304
  Transmission Date: 20080703
  Serious: Yes (Death)
  Sender: FDA-Public Use
  Company Number: ES-PFIZER INC-2008019652

PATIENT
  Age: 36 Year
  Sex: Female

DRUGS (2)
  1. ZELDOX (CAPSULES) [Suspect]
     Route: 048
  2. CLOZAPINE [Suspect]
     Route: 048

REACTIONS (1)
  - SUDDEN DEATH [None]
